FAERS Safety Report 20912499 (Version 1)
Quarter: 2022Q2

REPORT INFORMATION
  Report Type: Spontaneous
  Country: US (occurrence: US)
  Receive Date: 20220603
  Receipt Date: 20220603
  Transmission Date: 20220721
  Serious: No
  Sender: FDA-Public Use
  Company Number: US-NOVARTISTESTPH-NVSC2022US128504

PATIENT
  Sex: Male

DRUGS (2)
  1. VOLTAREN [Suspect]
     Active Substance: DICLOFENAC SODIUM
     Indication: Pain
     Dosage: UNK (2 APPLICATIONS ONE AROUND 6 AND ONE AROUND MIDNIGHT)
     Route: 065
     Dates: start: 20220522
  2. CAPSAICIN [Suspect]
     Active Substance: CAPSAICIN
     Indication: Product used for unknown indication
     Dosage: UNK
     Route: 065

REACTIONS (4)
  - Arthralgia [Recovering/Resolving]
  - Musculoskeletal stiffness [Recovering/Resolving]
  - Hypersensitivity [Recovering/Resolving]
  - Pain [Unknown]

NARRATIVE: CASE EVENT DATE: 20220501
